FAERS Safety Report 18123991 (Version 2)
Quarter: 2024Q1

REPORT INFORMATION
  Report Type: Spontaneous
  Country: IT (occurrence: IT)
  Receive Date: 20200807
  Receipt Date: 20240301
  Transmission Date: 20240410
  Serious: Yes (Hospitalization)
  Sender: FDA-Public Use
  Company Number: IT-AUROBINDO-AUR-APL-2015-02001

PATIENT
  Age: 24 Year
  Sex: Male

DRUGS (10)
  1. ARIPIPRAZOLE [Interacting]
     Active Substance: ARIPIPRAZOLE
     Indication: Agitation
     Dosage: 20 MILLIGRAM, ONCE A DAY
     Route: 048
  2. ARIPIPRAZOLE [Interacting]
     Active Substance: ARIPIPRAZOLE
     Indication: Anxiety
  3. ARIPIPRAZOLE [Interacting]
     Active Substance: ARIPIPRAZOLE
     Indication: Insomnia
  4. ARIPIPRAZOLE [Interacting]
     Active Substance: ARIPIPRAZOLE
     Indication: Social avoidant behaviour
  5. ARIPIPRAZOLE [Interacting]
     Active Substance: ARIPIPRAZOLE
     Indication: Blunted affect
  6. DELORAZEPAM [Interacting]
     Active Substance: DELORAZEPAM
     Indication: Anxiety
     Dosage: 2 MILLIGRAM, ONCE A DAY
     Route: 065
  7. DELORAZEPAM [Interacting]
     Active Substance: DELORAZEPAM
     Indication: Agitation
  8. DELORAZEPAM [Interacting]
     Active Substance: DELORAZEPAM
     Indication: Insomnia
  9. DELORAZEPAM [Interacting]
     Active Substance: DELORAZEPAM
     Indication: Blunted affect
  10. DELORAZEPAM [Interacting]
     Active Substance: DELORAZEPAM
     Indication: Social avoidant behaviour

REACTIONS (2)
  - Hiccups [Recovered/Resolved]
  - Drug interaction [Unknown]
